FAERS Safety Report 8925052 (Version 2)
Quarter: 2013Q1

REPORT INFORMATION
  Report Type: Spontaneous
  Country: ZA (occurrence: ZA)
  Receive Date: 20121126
  Receipt Date: 20130125
  Transmission Date: 20140127
  Serious: Yes (Hospitalization, Other)
  Sender: FDA-Public Use
  Company Number: ZA-ELI_LILLY_AND_COMPANY-ZA201211004459

PATIENT
  Age: 55 Year
  Sex: Female

DRUGS (4)
  1. HUMALOG 25% LISPRO, 75% NPL [Suspect]
     Indication: TYPE 2 DIABETES MELLITUS
     Dosage: 15 U, BID
     Route: 058
     Dates: start: 201207
  2. METFORMIN [Concomitant]
     Indication: TYPE 2 DIABETES MELLITUS
     Dosage: 1000 MG, BID
     Route: 048
  3. ANTIHYPERTENSIVES [Concomitant]
     Indication: BLOOD PRESSURE INCREASED
  4. WARFARIN [Concomitant]

REACTIONS (4)
  - Blood iron decreased [Unknown]
  - Malaise [Unknown]
  - Unevaluable event [Unknown]
  - Gastrointestinal haemorrhage [Unknown]
